FAERS Safety Report 5068828-5 (Version None)
Quarter: 2006Q3

REPORT INFORMATION
  Report Type: 
  Country: None (occurrence: None)
  Receive Date: 20060802
  Receipt Date: 20060425
  Transmission Date: 20061208
  Serious: No
  Sender: FDA-Public Use
  Company Number: US-BRISTOL-MYERS SQUIBB COMPANY-13355995

PATIENT
  Age: 69 Year
  Sex: Female
  Weight: 73 kg

DRUGS (6)
  1. COUMADIN [Suspect]
     Indication: ATRIAL FIBRILLATION
     Dosage: 5 MG DAILY 4 DAYS PER WEEK + 7.5 MG DAILY 3 DAYS PER WEEK
  2. COZAAR [Concomitant]
  3. LASIX [Concomitant]
  4. TOPROL-XL [Concomitant]
  5. NITROGLYCERIN [Concomitant]
     Route: 062
  6. NITROGLYCERIN SL [Concomitant]
     Route: 060

REACTIONS (2)
  - DYSPNOEA [None]
  - PALPITATIONS [None]
